FAERS Safety Report 8132762-4 (Version None)
Quarter: 2012Q1

REPORT INFORMATION
  Report Type: 
  Country: None (occurrence: None)
  Receive Date: 20120213
  Receipt Date: 20120202
  Transmission Date: 20120608
  Serious: Yes (Hospitalization)
  Sender: FDA-Public Use
  Company Number: US-JNJFOC-20110407038

PATIENT
  Sex: Male
  Weight: 44.1 kg

DRUGS (12)
  1. TENORMIN [Concomitant]
  2. ACETAMINOPHEN [Concomitant]
  3. LEVSIN [Concomitant]
  4. REMICADE [Suspect]
     Indication: CROHN'S DISEASE
     Route: 042
     Dates: start: 20060810, end: 20080814
  5. MULTI-VITAMINS [Concomitant]
  6. FERROUS SULFATE TAB [Concomitant]
  7. NORVASC [Concomitant]
  8. ANTIBIOTICS FOR IBD [Concomitant]
  9. PREVACID [Concomitant]
  10. METHOTREXATE [Concomitant]
  11. FOLIC ACID [Concomitant]
  12. ASPIRIN [Concomitant]

REACTIONS (1)
  - COLITIS [None]
